FAERS Safety Report 25050248 (Version 1)
Quarter: 2025Q1

REPORT INFORMATION
  Report Type: Spontaneous
  Country: CA (occurrence: CA)
  Receive Date: 20250307
  Receipt Date: 20250307
  Transmission Date: 20250409
  Serious: Yes (Life-Threatening, Hospitalization, Other)
  Sender: SANDOZ
  Company Number: CA-SANDOZ-SDZ2025CA014126

PATIENT
  Age: 48 Year
  Sex: Male

DRUGS (15)
  1. CAMZYOS [Suspect]
     Active Substance: MAVACAMTEN
     Dosage: 2.5 MG, QD
     Route: 048
  2. CAMZYOS [Suspect]
     Active Substance: MAVACAMTEN
     Indication: Hypertrophic cardiomyopathy
     Dosage: 5.0 MG, QD
     Route: 048
  3. METOPROLOL [Suspect]
     Active Substance: METOPROLOL
     Route: 065
  4. METOPROLOL [Suspect]
     Active Substance: METOPROLOL
     Indication: Product used for unknown indication
     Route: 065
  5. ASPIRIN [Concomitant]
     Active Substance: ASPIRIN
     Indication: Product used for unknown indication
     Dosage: 80.0 MG, QD
     Route: 065
  6. EZETIMIBE [Concomitant]
     Active Substance: EZETIMIBE
     Indication: Product used for unknown indication
     Dosage: 10.0 MG, QD
     Route: 065
  7. GLICLAZIDE [Concomitant]
     Active Substance: GLICLAZIDE
     Indication: Product used for unknown indication
     Dosage: 60.0 MG, QD
     Route: 065
  8. ENOXAPARIN SODIUM [Concomitant]
     Active Substance: ENOXAPARIN SODIUM
     Indication: Product used for unknown indication
     Route: 065
  9. JARDIANCE [Concomitant]
     Active Substance: EMPAGLIFLOZIN
     Indication: Product used for unknown indication
     Dosage: 10.0 MG, QD
     Route: 065
  10. LISINOPRIL [Concomitant]
     Active Substance: LISINOPRIL
     Indication: Product used for unknown indication
     Dosage: 5.0 MG, QD
     Route: 065
  11. METFORMIN [Concomitant]
     Active Substance: METFORMIN HYDROCHLORIDE
     Route: 065
  12. METFORMIN [Concomitant]
     Active Substance: METFORMIN HYDROCHLORIDE
     Indication: Product used for unknown indication
     Route: 065
  13. PANTOPRAZOLE [Concomitant]
     Active Substance: PANTOPRAZOLE
     Indication: Product used for unknown indication
     Route: 065
  14. ROSUVASTATIN [Concomitant]
     Active Substance: ROSUVASTATIN
     Indication: Product used for unknown indication
     Dosage: 40.0 MG, QD
     Route: 065
  15. VENLAFAXINE [Concomitant]
     Active Substance: VENLAFAXINE HYDROCHLORIDE
     Indication: Product used for unknown indication
     Dosage: 225.0 MG, QD
     Route: 065

REACTIONS (10)
  - Colon cancer [Recovering/Resolving]
  - Craniofacial fracture [Recovering/Resolving]
  - Decreased appetite [Recovering/Resolving]
  - Fall [Recovering/Resolving]
  - Hand fracture [Recovering/Resolving]
  - Heart rate increased [Recovering/Resolving]
  - Intestinal obstruction [Recovering/Resolving]
  - Neoplasm malignant [Recovering/Resolving]
  - Rectal neoplasm [Recovering/Resolving]
  - Sepsis [Recovering/Resolving]
